FAERS Safety Report 5192803-3 (Version None)
Quarter: 2006Q4

REPORT INFORMATION
  Report Type: 
  Country: None (occurrence: None)
  Receive Date: 20061228
  Receipt Date: 20051103
  Transmission Date: 20070319
  Serious: No
  Sender: FDA-Public Use
  Company Number: US-GLAXOSMITHKLINE-A0580809A

PATIENT
  Sex: Female

DRUGS (4)
  1. FLONASE [Suspect]
     Indication: DRUG USE FOR UNKNOWN INDICATION
     Dosage: 2SPR TWICE PER DAY
     Route: 045
     Dates: start: 20050901
  2. SYNTHROID [Concomitant]
  3. IBUPROFEN [Concomitant]
  4. CORTICOSTEROID [Concomitant]

REACTIONS (6)
  - CHILLS [None]
  - MUSCULOSKELETAL DISORDER [None]
  - PAIN [None]
  - PARAESTHESIA [None]
  - PYREXIA [None]
  - TREMOR [None]
